FAERS Safety Report 9993331 (Version 1)
Quarter: 2014Q1

REPORT INFORMATION
  Report Type: Spontaneous
  Country: PT (occurrence: PT)
  Receive Date: 20140310
  Receipt Date: 20140310
  Transmission Date: 20141002
  Serious: Yes (Life-Threatening)
  Sender: FDA-Public Use
  Company Number: PT-MYLANLABS-2014S1004471

PATIENT
  Age: 22 Year
  Sex: Female

DRUGS (3)
  1. PAROXETINE [Suspect]
     Indication: DEPRESSION
     Dosage: 15 TABLETS
  2. PAROXETINE [Suspect]
     Indication: DEPRESSION
     Dosage: 15 TABLETES
     Route: 048
  3. SEDOXIL [Concomitant]
     Indication: DEPRESSION

REACTIONS (4)
  - Overdose [Unknown]
  - Drug abuse [Unknown]
  - Headache [Unknown]
  - Nausea [Unknown]
